FAERS Safety Report 8489986-6 (Version None)
Quarter: 2012Q3

REPORT INFORMATION
  Report Type: 
  Country: None (occurrence: None)
  Receive Date: 20120705
  Receipt Date: 20120702
  Transmission Date: 20120928
  Serious: Yes (Other)
  Sender: FDA-Public Use
  Company Number: FR-JNJFOC-20120606648

PATIENT
  Age: 62 Year
  Sex: Female

DRUGS (5)
  1. BACTRIM [Suspect]
     Indication: PRODUCT USED FOR UNKNOWN INDICATION
     Route: 065
  2. FLUCONAZOLE [Suspect]
     Indication: PRODUCT USED FOR UNKNOWN INDICATION
     Route: 065
  3. RITONAVIR [Suspect]
     Indication: HIV INFECTION
     Route: 065
     Dates: start: 20120201
  4. VALGANCICLOVIR [Suspect]
     Indication: CYTOMEGALOVIRUS INFECTION
     Dates: start: 20120301
  5. PREZISTA [Suspect]
     Indication: HIV INFECTION
     Route: 048
     Dates: start: 20120201

REACTIONS (2)
  - PANCYTOPENIA [None]
  - MYELODYSPLASTIC SYNDROME [None]
